FAERS Safety Report 4373445-6 (Version None)
Quarter: 2004Q2

REPORT INFORMATION
  Report Type: 
  Country: None (occurrence: None)
  Receive Date: 20040603
  Receipt Date: 20040520
  Transmission Date: 20050107
  Serious: Yes (Life-Threatening)
  Sender: FDA-Public Use
  Company Number: 2004214738PT

PATIENT
  Age: 38 Year
  Sex: Male
  Weight: 66 kg

DRUGS (1)
  1. SOLU-MEDROL [Suspect]
     Indication: URTICARIA
     Dosage: 1G/16ML, IV
     Route: 042
     Dates: start: 20040426, end: 20040426

REACTIONS (3)
  - CONDITION AGGRAVATED [None]
  - PRURITUS [None]
  - URTICARIA [None]
